FAERS Safety Report 5838000-7 (Version None)
Quarter: 2008Q3

REPORT INFORMATION
  Report Type: 
  Country: None (occurrence: None)
  Receive Date: 20080808
  Receipt Date: 20080212
  Transmission Date: 20090109
  Serious: No
  Sender: FDA-Public Use
  Company Number: A0709105A

PATIENT
  Age: 42 Year
  Sex: Male

DRUGS (2)
  1. PAXIL [Suspect]
     Indication: POST-TRAUMATIC STRESS DISORDER
     Dosage: 20MG PER DAY
     Route: 048
     Dates: start: 20080101
  2. AMBIEN [Concomitant]

REACTIONS (2)
  - ERECTILE DYSFUNCTION [None]
  - ORGASM ABNORMAL [None]
